FAERS Safety Report 5928206-0 (Version None)
Quarter: 2008Q4

REPORT INFORMATION
  Report Type: 
  Country: None (occurrence: None)
  Receive Date: 20081023
  Receipt Date: 20081015
  Transmission Date: 20090506
  Serious: Yes (Other)
  Sender: FDA-Public Use
  Company Number: PHHY2008CN24905

PATIENT
  Age: 41 Year
  Sex: Male

DRUGS (2)
  1. STARLIX [Suspect]
     Dosage: 60 MG, TID
     Route: 048
     Dates: end: 20081013
  2. INSULIN [Concomitant]
     Dosage: UNK

REACTIONS (1)
  - ARRHYTHMIA [None]
